FAERS Safety Report 8688201 (Version 2)
Quarter: 2013Q4

REPORT INFORMATION
  Report Type: Spontaneous
  Country: US (occurrence: US)
  Receive Date: 20120727
  Receipt Date: 20131031
  Transmission Date: 20140711
  Serious: Yes (Other)
  Sender: FDA-Public Use
  Company Number: US-009507513-1207USA010219

PATIENT
  Age: 65 Year
  Sex: Male

DRUGS (3)
  1. JANUVIA [Suspect]
     Route: 048
  2. CELECOX [Suspect]
     Dosage: 200 MG, QD
     Route: 048
  3. MUCOSTA [Concomitant]
     Route: 048

REACTIONS (2)
  - Muscular weakness [Unknown]
  - Eyelid ptosis [Unknown]
